FAERS Safety Report 15409137 (Version 1)
Quarter: 2018Q3

REPORT INFORMATION
  Report Type: Spontaneous
  Country: US (occurrence: US)
  Receive Date: 20180920
  Receipt Date: 20180920
  Transmission Date: 20181010
  Serious: Yes (Disabling, Other)
  Sender: FDA-Public Use
  Company Number: US-SA-2018SA259473

PATIENT
  Age: 72 Year
  Sex: Female

DRUGS (2)
  1. TOUJEO [Suspect]
     Active Substance: INSULIN GLARGINE
     Indication: TYPE 2 DIABETES MELLITUS
     Dosage: 34 IU, QD
  2. VICTOZA [Concomitant]
     Active Substance: LIRAGLUTIDE

REACTIONS (7)
  - Chronic obstructive pulmonary disease [Unknown]
  - Wheezing [Unknown]
  - Device operational issue [Unknown]
  - Drug dose omission [Unknown]
  - Disability [Unknown]
  - Needle issue [Unknown]
  - Cough [Unknown]

NARRATIVE: CASE EVENT DATE: 20180912
